FAERS Safety Report 4828397-9 (Version None)
Quarter: 2005Q4

REPORT INFORMATION
  Report Type: 
  Country: None (occurrence: None)
  Receive Date: 20051115
  Receipt Date: 20051104
  Transmission Date: 20060501
  Serious: Yes (Death, Hospitalization, Other)
  Sender: FDA-Public Use
  Company Number: US-MERCK-0511USA00868

PATIENT
  Age: 55 Year
  Sex: Female
  Weight: 54 kg

DRUGS (12)
  1. VIOXX [Suspect]
     Indication: ARTHRALGIA
     Route: 048
     Dates: start: 19990101, end: 20030204
  2. PAXIL [Concomitant]
     Route: 065
  3. COUMADIN [Concomitant]
     Route: 065
  4. [THERAPY UNSPECIFIED] [Concomitant]
     Route: 065
  5. ELAVIL [Concomitant]
     Route: 048
  6. PREMARIN [Concomitant]
     Route: 065
  7. NEURONTIN [Concomitant]
     Route: 065
  8. XANAX [Concomitant]
     Route: 065
  9. PRILOSEC [Concomitant]
     Route: 048
  10. FOLIC ACID [Concomitant]
     Route: 065
  11. CYANOCOBALAMIN [Concomitant]
     Route: 058
  12. ASPIRIN [Concomitant]
     Route: 065

REACTIONS (8)
  - BRAIN DEATH [None]
  - CARDIAC ARREST [None]
  - CEREBROVASCULAR ACCIDENT [None]
  - HYPOXIC ENCEPHALOPATHY [None]
  - MYOCARDIAL INFARCTION [None]
  - PNEUMONIA [None]
  - RENAL FAILURE [None]
  - URINARY TRACT INFECTION [None]
